FAERS Safety Report 6728638-7 (Version None)
Quarter: 2010Q2

REPORT INFORMATION
  Report Type: 
  Country: None (occurrence: None)
  Receive Date: 20100517
  Receipt Date: 20100506
  Transmission Date: 20101027
  Serious: Yes (Hospitalization)
  Sender: FDA-Public Use
  Company Number: -BAXTER-2010BH012632

PATIENT
  Sex: Female

DRUGS (2)
  1. DIANEAL [Suspect]
     Indication: PERITONEAL DIALYSIS
     Route: 033
     Dates: start: 20080201
  2. CONTRAST DYE [Suspect]
     Indication: GASTROINTESTINAL EXAMINATION
     Route: 065
     Dates: start: 20100101

REACTIONS (1)
  - STEVENS-JOHNSON SYNDROME [None]
